FAERS Safety Report 7488527-X (Version None)
Quarter: 2011Q2

REPORT INFORMATION
  Report Type: 
  Country: None (occurrence: None)
  Receive Date: 20110518
  Receipt Date: 20110512
  Transmission Date: 20111010
  Serious: Yes (Hospitalization)
  Sender: FDA-Public Use
  Company Number: JP-MERCK-1104USA00725

PATIENT
  Age: 43 Year
  Sex: Male

DRUGS (11)
  1. CALCIUM CARBONATE [Concomitant]
     Route: 048
  2. NOROXIN [Suspect]
     Indication: ENTERITIS INFECTIOUS
     Route: 048
     Dates: start: 20110305, end: 20110311
  3. EURODIN [Concomitant]
     Route: 048
  4. NOROXIN [Suspect]
     Indication: PYREXIA
     Route: 048
     Dates: start: 20110305, end: 20110311
  5. ASPIRIN [Concomitant]
     Route: 048
  6. LASIX [Concomitant]
     Route: 048
  7. RENAGEL [Concomitant]
     Route: 048
  8. PURSENNID [Concomitant]
     Route: 048
  9. OLMESARTAN MEDOXOMIL [Concomitant]
     Route: 048
  10. CATAPRES [Concomitant]
     Route: 048
  11. ADALAT CC [Concomitant]
     Route: 048

REACTIONS (3)
  - HEPATIC FUNCTION ABNORMAL [None]
  - MALAISE [None]
  - ABDOMINAL DISTENSION [None]
